FAERS Safety Report 20721927 (Version 9)
Quarter: 2023Q4

REPORT INFORMATION
  Report Type: Spontaneous
  Country: US (occurrence: US)
  Receive Date: 20220418
  Receipt Date: 20231128
  Transmission Date: 20240110
  Serious: Yes (Hospitalization, Other)
  Sender: FDA-Public Use
  Company Number: US-PFIZER INC-202101098044

PATIENT
  Age: 68 Year
  Sex: Female

DRUGS (1)
  1. IBRANCE [Suspect]
     Active Substance: PALBOCICLIB
     Indication: Breast cancer female
     Dosage: 125 MG
     Dates: start: 20210721

REACTIONS (14)
  - Dehydration [Unknown]
  - Renal impairment [Unknown]
  - Blood potassium decreased [Unknown]
  - Blood sodium decreased [Unknown]
  - Blood magnesium decreased [Unknown]
  - Product dose omission issue [Unknown]
  - Cough [Unknown]
  - Diarrhoea [Unknown]
  - Nausea [Unknown]
  - Tachycardia [Unknown]
  - Fatigue [Unknown]
  - COVID-19 [Unknown]
  - Bronchitis [Recovering/Resolving]
  - Malaise [Unknown]
